FAERS Safety Report 13716479 (Version 1)
Quarter: 2017Q3

REPORT INFORMATION
  Report Type: Spontaneous
  Country: US (occurrence: US)
  Receive Date: 20170703
  Receipt Date: 20170703
  Transmission Date: 20171127
  Serious: Yes (Other)
  Sender: FDA-Public Use
  Company Number: None

PATIENT
  Age: 73 Year
  Sex: Female
  Weight: 61.29 kg

DRUGS (1)
  1. CUVITRU [Suspect]
     Active Substance: HUMAN IMMUNOGLOBULIN G
     Indication: IMMUNODEFICIENCY
     Route: 058
     Dates: start: 20170614

REACTIONS (6)
  - Injection site warmth [None]
  - Injection site swelling [None]
  - Urticaria [None]
  - Headache [None]
  - Injection site reaction [None]
  - Rash [None]

NARRATIVE: CASE EVENT DATE: 20170617
